FAERS Safety Report 19678405 (Version 4)
Quarter: 2022Q1

REPORT INFORMATION
  Report Type: Other
  Country: JP (occurrence: JP)
  Receive Date: 20210809
  Receipt Date: 20220310
  Transmission Date: 20220423
  Serious: Yes (Death, Other)
  Sender: FDA-Public Use
  Company Number: JP-CHUGAI-2021009580

PATIENT
  Age: 69 Year
  Sex: Male
  Weight: 68.9 kg

DRUGS (2)
  1. TECENTRIQ [Suspect]
     Active Substance: ATEZOLIZUMAB
     Indication: Hepatocellular carcinoma
     Dosage: 0.05 UNK
     Route: 041
     Dates: start: 20201228, end: 20201228
  2. AVASTIN [Suspect]
     Active Substance: BEVACIZUMAB
     Indication: Hepatocellular carcinoma
     Dosage: 0.05 UNK
     Route: 041
     Dates: start: 20201228, end: 20201228

REACTIONS (3)
  - Hepatic failure [Fatal]
  - Tumour rupture [Unknown]
  - Tumour haemorrhage [Fatal]

NARRATIVE: CASE EVENT DATE: 20210101
